FAERS Safety Report 4685934-5 (Version None)
Quarter: 2005Q2

REPORT INFORMATION
  Report Type: 
  Country: None (occurrence: None)
  Receive Date: 20050606
  Receipt Date: 20050606
  Transmission Date: 20051028
  Serious: Yes (Other)
  Sender: FDA-Public Use
  Company Number: None

PATIENT
  Sex: Male
  Weight: 71.6 kg

DRUGS (5)
  1. CYTARABINE [Suspect]
     Indication: ACUTE MYELOID LEUKAEMIA
     Dosage: 100 MG/M2/DAY BY CIV ON DAYS 1-7
     Route: 042
     Dates: start: 20041217
  2. DAUNORUBICIN HCL [Suspect]
     Indication: ACUTE MYELOID LEUKAEMIA
     Dosage: 60 MG/M2/DAY BY IVP ON DAYS 1-3
     Route: 042
     Dates: start: 20041217
  3. CYTARABINE 100 MG/M2 CIV ON DAYS 1-5 [Suspect]
     Dosage: 100 MG/M2 CIV ON DAYS 1-5
     Route: 042
  4. DAUNORUBICIN 60 MG/M2/DAY BY IVP ON DAYS 1-2 [Suspect]
     Dosage: 60 MG/M2/DAY IVP ON DAYS 1-2
     Route: 042
  5. CYTARABINE 2000 MG/M2/DAY IV OVER 3 HOURS ON DAYS 1-5 [Suspect]
     Dosage: 2000 MG/M2/DAY IV OVER 3 HOURS ON DAYS 1-5.
     Route: 042

REACTIONS (1)
  - FEBRILE NEUTROPENIA [None]
